FAERS Safety Report 17429919 (Version 2)
Quarter: 2020Q1

REPORT INFORMATION
  Report Type: Spontaneous
  Country: US (occurrence: US)
  Receive Date: 20200218
  Receipt Date: 20200227
  Transmission Date: 20200409
  Serious: No
  Sender: FDA-Public Use
  Company Number: US-PFIZER INC-2020067825

PATIENT
  Age: 56 Year
  Sex: Female
  Weight: 54.43 kg

DRUGS (2)
  1. XANAX [Suspect]
     Active Substance: ALPRAZOLAM
     Indication: ANXIETY
     Dosage: 0.5 MG, DAILY
     Route: 048
     Dates: start: 2010
  2. PROZAC [Interacting]
     Active Substance: FLUOXETINE HYDROCHLORIDE
     Dosage: 10 MG, 1X/DAY
     Route: 048
     Dates: start: 20200207, end: 20200211

REACTIONS (11)
  - Disturbance in attention [Recovered/Resolved]
  - Confusional state [Unknown]
  - Malaise [Unknown]
  - Sleep disorder [Recovered/Resolved]
  - Night sweats [Recovered/Resolved]
  - Intentional product misuse [Unknown]
  - Nightmare [Recovered/Resolved]
  - Drug interaction [Recovered/Resolved]
  - Irritability [Recovering/Resolving]
  - Formication [Recovering/Resolving]
  - Disease recurrence [Recovering/Resolving]

NARRATIVE: CASE EVENT DATE: 20200207
